FAERS Safety Report 24276365 (Version 2)
Quarter: 2024Q3

REPORT INFORMATION
  Report Type: Report from Study
  Country: MX (occurrence: MX)
  Receive Date: 20240903
  Receipt Date: 20240919
  Transmission Date: 20241017
  Serious: Yes (Other)
  Sender: ROCHE
  Company Number: MX-002147023-NVSC2024MX173881

PATIENT
  Age: 52 Year
  Sex: Female
  Weight: 72 kg

DRUGS (2)
  1. XOLAIR [Suspect]
     Active Substance: OMALIZUMAB
     Indication: Hypersensitivity
     Dosage: 1 DOSAGE FORM, QMO
     Route: 050
     Dates: start: 20240722
  2. ERENUMAB [Concomitant]
     Active Substance: ERENUMAB

REACTIONS (13)
  - Throat tightness [Recovered/Resolved]
  - Nausea [Recovered/Resolved]
  - Swollen tongue [Recovered/Resolved]
  - Injection site pain [Recovered/Resolved]
  - Headache [Recovered/Resolved]
  - Application site pain [Recovered/Resolved]
  - Application site pruritus [Recovered/Resolved]
  - Fatigue [Recovered/Resolved]
  - Cold sweat [Recovered/Resolved]
  - Vision blurred [Recovered/Resolved]
  - Ear discomfort [Recovered/Resolved]
  - Blood pressure increased [Recovered/Resolved]
  - Off label use [Unknown]

NARRATIVE: CASE EVENT DATE: 20240826
